FAERS Safety Report 7807244-7 (Version None)
Quarter: 2011Q4

REPORT INFORMATION
  Report Type: 
  Country: None (occurrence: None)
  Receive Date: 20111011
  Receipt Date: 20111005
  Transmission Date: 20120403
  Serious: Yes (Other)
  Sender: FDA-Public Use
  Company Number: CA-PFIZER INC-2011237928

PATIENT
  Age: 60 Year
  Sex: Female

DRUGS (1)
  1. EFFEXOR [Suspect]
     Dosage: LESS THAN 150MG
     Dates: start: 20010101

REACTIONS (1)
  - NIPPLE EXUDATE BLOODY [None]
